FAERS Safety Report 6749165-7 (Version None)
Quarter: 2010Q2

REPORT INFORMATION
  Report Type: 
  Country: None (occurrence: None)
  Receive Date: 20100601
  Receipt Date: 20100526
  Transmission Date: 20101027
  Serious: Yes (Other)
  Sender: FDA-Public Use
  Company Number: US-BAYER-201022792NA

PATIENT
  Age: 32 Year
  Sex: Female

DRUGS (6)
  1. BETASERON [Suspect]
     Indication: RELAPSING-REMITTING MULTIPLE SCLEROSIS
     Dosage: TOTAL DAILY DOSE: 2 MIU
     Route: 058
     Dates: start: 20100422
  2. FIORICET [Concomitant]
     Indication: MIGRAINE
  3. METFORMIN HCL [Concomitant]
  4. LOVASTATIN [Concomitant]
  5. LORAZEPAM [Concomitant]
  6. HYDROMORPHONE HCL [Concomitant]

REACTIONS (6)
  - ASTHENIA [None]
  - ASTHENOPIA [None]
  - FATIGUE [None]
  - HEADACHE [None]
  - INJECTION SITE RASH [None]
  - MIGRAINE [None]
